FAERS Safety Report 9787586 (Version 2)
Quarter: 2014Q2

REPORT INFORMATION
  Report Type: Spontaneous
  Country: US (occurrence: None)
  Receive Date: 20131226
  Receipt Date: 20140527
  Transmission Date: 20141212
  Serious: Yes (Hospitalization)
  Sender: FDA-Public Use
  Company Number: 2013-US-004404

PATIENT
  Age: 50 Year
  Sex: Female

DRUGS (6)
  1. XYREM [Suspect]
     Indication: SOMNOLENCE
     Route: 048
     Dates: start: 200405, end: 2004
  2. XYREM [Suspect]
     Indication: SLEEP DISORDER
     Route: 048
     Dates: start: 200405, end: 2004
  3. LYRICA (PREGABALIN) [Concomitant]
  4. CYMBALTA [Concomitant]
  5. OPANA (OXYMORPHONE HYDROCHLORIDE) [Concomitant]
  6. METHOCARBAMOL (METHOCARBAMOL) [Concomitant]

REACTIONS (3)
  - Pneumonia [None]
  - Off label use [None]
  - Pneumonia viral [None]
